FAERS Safety Report 5420962-3 (Version None)
Quarter: 2007Q3

REPORT INFORMATION
  Report Type: 
  Country: None (occurrence: None)
  Receive Date: 20070817
  Receipt Date: 20070808
  Transmission Date: 20080115
  Serious: Yes (Other)
  Sender: FDA-Public Use
  Company Number: SP01524

PATIENT
  Age: 47 Year
  Sex: Male

DRUGS (2)
  1. XIFAXAN [Suspect]
     Indication: HEPATIC ENCEPHALOPATHY PROPHYLAXIS
     Dosage: 1200 MG (400 MG, 3 IN 1 D)
  2. ERTAPENEM [Suspect]
     Indication: PERITONITIS

REACTIONS (2)
  - CLOSTRIDIUM DIFFICILE COLITIS [None]
  - PERITONITIS [None]
